FAERS Safety Report 6880902-7 (Version None)
Quarter: 2010Q3

REPORT INFORMATION
  Report Type: 
  Country: None (occurrence: None)
  Receive Date: 20100728
  Receipt Date: 20100726
  Transmission Date: 20110219
  Serious: Yes (Other)
  Sender: FDA-Public Use
  Company Number: FR-BAUSCH-2010BL004062

PATIENT
  Age: 57 Year
  Sex: Female

DRUGS (2)
  1. CARTEOL LP 2% COLLYRE EN SOLUTION A LIBERATION PROLONGEE [Suspect]
     Indication: OCULAR HYPERTENSION
     Route: 047
     Dates: start: 20100201
  2. XALATAN /SWE/ [Concomitant]
     Indication: OCULAR HYPERTENSION
     Route: 047
     Dates: start: 20100101, end: 20100101

REACTIONS (4)
  - ARTHRITIS [None]
  - JOINT SWELLING [None]
  - RHEUMATOID ARTHRITIS [None]
  - SPONDYLITIS [None]
